FAERS Safety Report 5728374-X (Version None)
Quarter: 2008Q2

REPORT INFORMATION
  Report Type: 
  Country: None (occurrence: None)
  Receive Date: 20080506
  Receipt Date: 20080428
  Transmission Date: 20081010
  Serious: Yes (Other)
  Sender: FDA-Public Use
  Company Number: PHEH2008US03889

PATIENT
  Age: 77 Year
  Sex: Female
  Weight: 175 kg

DRUGS (1)
  1. EXFORGE [Suspect]
     Indication: HYPERTENSION
     Dosage: 5MGAMLO/160MGVAL
     Dates: start: 20071201

REACTIONS (4)
  - ANOREXIA [None]
  - LIP NEOPLASM [None]
  - SKIN LESION EXCISION [None]
  - WEIGHT DECREASED [None]
